FAERS Safety Report 7941832-2 (Version None)
Quarter: 2011Q4

REPORT INFORMATION
  Report Type: 
  Country: None (occurrence: None)
  Receive Date: 20111128
  Receipt Date: 20111121
  Transmission Date: 20120403
  Serious: Yes (Death)
  Sender: FDA-Public Use
  Company Number: HK-JNJFOC-20091008037

PATIENT
  Sex: Male
  Weight: 50 kg

DRUGS (35)
  1. VANCOMYCIN [Concomitant]
     Route: 042
     Dates: start: 20091012, end: 20091017
  2. SODIUM BICARBONATE [Concomitant]
     Route: 042
     Dates: start: 20091019, end: 20091019
  3. PIPERACILLIN AND TAZOBACTAM [Concomitant]
     Indication: INFECTIOUS PERITONITIS
     Route: 042
     Dates: start: 20091008, end: 20091008
  4. ZINACEF [Concomitant]
     Indication: INFECTIOUS PERITONITIS
     Route: 042
     Dates: start: 20091007, end: 20091008
  5. RANITIDINE [Concomitant]
     Indication: PROPHYLAXIS
     Route: 042
     Dates: start: 20091008, end: 20091022
  6. SODIUM BICARBONATE [Concomitant]
     Route: 042
     Dates: start: 20091022, end: 20091022
  7. VOLUVEN [Concomitant]
     Route: 042
     Dates: start: 20091008, end: 20091009
  8. DORIPENEM MONOHYDRATE [Suspect]
     Indication: ILL-DEFINED DISORDER
     Route: 041
     Dates: start: 20091009, end: 20091017
  9. VANCOMYCIN [Concomitant]
     Route: 042
     Dates: start: 20091020, end: 20091022
  10. CEFTAZIDIME SODIUM [Concomitant]
     Indication: PNEUMONIA
     Route: 042
     Dates: start: 20091020, end: 20091022
  11. TRAMADOL HCL [Concomitant]
     Indication: PROCEDURAL PAIN
     Route: 060
     Dates: start: 20091005, end: 20091008
  12. VITRIMIX [Concomitant]
     Dates: start: 20091010, end: 20091022
  13. ALBUMIN (HUMAN) [Concomitant]
     Indication: HYPOALBUMINAEMIA
     Route: 042
     Dates: start: 20091008, end: 20091009
  14. AMIODARONE HCL [Concomitant]
     Indication: ATRIAL FIBRILLATION
     Route: 042
     Dates: start: 20091010, end: 20091010
  15. AMIODARONE HCL [Concomitant]
     Route: 042
     Dates: start: 20091012, end: 20091013
  16. FLAGYL [Concomitant]
     Indication: INFECTIOUS PERITONITIS
     Route: 042
     Dates: start: 20091007, end: 20091008
  17. FLAGYL [Concomitant]
     Route: 042
     Dates: start: 20091020, end: 20091022
  18. AMIKACIN [Concomitant]
     Indication: INFECTIOUS PERITONITIS
     Route: 042
     Dates: start: 20091017, end: 20091020
  19. HYDROCORTISONE [Concomitant]
     Indication: SEPSIS
     Route: 042
     Dates: start: 20091008, end: 20091022
  20. FLUCONAZOLE [Concomitant]
     Indication: INFECTIOUS PERITONITIS
     Route: 042
     Dates: start: 20091012, end: 20091022
  21. VITAMIN K1 [Concomitant]
     Indication: COAGULOPATHY
     Route: 042
     Dates: start: 20091010, end: 20091012
  22. PROPOFOL [Concomitant]
     Indication: SEDATION
     Route: 042
     Dates: start: 20091013, end: 20091015
  23. SODIUM BICARBONATE [Concomitant]
     Route: 042
     Dates: start: 20091019, end: 20091019
  24. LASIX [Concomitant]
     Route: 042
     Dates: start: 20091010, end: 20091010
  25. DIGOXIN [Concomitant]
     Indication: ATRIAL FIBRILLATION
     Route: 042
     Dates: start: 20091013, end: 20091013
  26. FENTANYL-100 [Concomitant]
     Indication: PROCEDURAL PAIN
     Route: 042
     Dates: start: 20091019, end: 20091019
  27. MORPHINE [Concomitant]
     Indication: PROCEDURAL PAIN
     Route: 042
     Dates: start: 20091010, end: 20091022
  28. GELOFUSINE [Concomitant]
     Route: 042
     Dates: start: 20091020, end: 20091022
  29. GELOFUSINE [Concomitant]
     Route: 042
     Dates: start: 20091009, end: 20091009
  30. TIGECYCLINE [Concomitant]
     Indication: INFECTIOUS PERITONITIS
     Route: 042
     Dates: start: 20091017, end: 20091017
  31. TIGECYCLINE [Concomitant]
     Route: 042
     Dates: start: 20091017, end: 20091020
  32. SODIUM BICARBONATE [Concomitant]
     Route: 042
     Dates: start: 20091019, end: 20091019
  33. LASIX [Concomitant]
     Indication: OEDEMA
     Route: 042
     Dates: start: 20091010, end: 20091011
  34. MEPERIDINE HCL [Concomitant]
     Indication: PROCEDURAL PAIN
     Route: 030
     Dates: start: 20091004, end: 20091008
  35. ASPIRIN [Concomitant]
     Indication: MYOCARDIAL ISCHAEMIA
     Route: 048
     Dates: start: 20091013, end: 20091015

REACTIONS (10)
  - PSEUDOMONAS TEST POSITIVE [None]
  - MULTI-ORGAN FAILURE [None]
  - THROMBOCYTOPENIA [None]
  - GENERALISED OEDEMA [None]
  - WOUND INFECTION FUNGAL [None]
  - CONDITION AGGRAVATED [None]
  - ENTEROCOCCUS TEST POSITIVE [None]
  - IMPAIRED HEALING [None]
  - ESCHERICHIA TEST POSITIVE [None]
  - KLEBSIELLA TEST POSITIVE [None]
